FAERS Safety Report 5205197-1 (Version None)
Quarter: 2007Q1

REPORT INFORMATION
  Report Type: 
  Country: None (occurrence: None)
  Receive Date: 20070110
  Receipt Date: 20061229
  Transmission Date: 20070707
  Serious: Yes (Other)
  Sender: FDA-Public Use
  Company Number: US-PFIZER INC-2006136225

PATIENT
  Sex: Female
  Weight: 49.9 kg

DRUGS (5)
  1. CHANTIX [Suspect]
     Indication: SMOKING CESSATION THERAPY
     Route: 048
     Dates: start: 20061103, end: 20061101
  2. TRAZODONE HCL [Concomitant]
     Route: 048
  3. XANAX [Concomitant]
     Route: 048
  4. SOMA [Concomitant]
     Route: 048
  5. MS CONTIN [Concomitant]
     Route: 048

REACTIONS (12)
  - DISORIENTATION [None]
  - DYSGEUSIA [None]
  - DYSPNOEA [None]
  - FEELING ABNORMAL [None]
  - GLOSSODYNIA [None]
  - HEART RATE INCREASED [None]
  - HYPERHIDROSIS [None]
  - RESTLESSNESS [None]
  - SWOLLEN TONGUE [None]
  - TREMOR [None]
  - URTICARIA [None]
  - VISUAL DISTURBANCE [None]
